FAERS Safety Report 4936333-X (Version None)
Quarter: 2006Q1

REPORT INFORMATION
  Report Type: 
  Country: None (occurrence: None)
  Receive Date: 20060127
  Receipt Date: 20051110
  Transmission Date: 20060701
  Serious: Yes (Other)
  Sender: FDA-Public Use
  Company Number: 2005154725

PATIENT
  Sex: Female

DRUGS (2)
  1. LYRICA [Suspect]
     Indication: POST HERPETIC NEURALGIA
     Dosage: 75 MG (75 MG,1 IN 1 D)
  2. ALL OTHER THERAPEUTIC PRODUCTS (ALL OTHER THERAPEUTIC PRODUCTS) [Suspect]
     Indication: GOUT
     Dates: start: 20050101, end: 20050101

REACTIONS (4)
  - GOUT [None]
  - HEADACHE [None]
  - HYPERTENSION [None]
  - PAIN IN EXTREMITY [None]
